FAERS Safety Report 18152057 (Version 3)
Quarter: 2020Q3

REPORT INFORMATION
  Report Type: Spontaneous
  Country: AU (occurrence: AU)
  Receive Date: 20200814
  Receipt Date: 20200818
  Transmission Date: 20201103
  Serious: Yes (Hospitalization, Other)
  Sender: FDA-Public Use
  Company Number: AU-PFIZER INC-2020310865

PATIENT
  Age: 64 Year
  Sex: Female

DRUGS (27)
  1. RISPERIDONE. [Suspect]
     Active Substance: RISPERIDONE
     Indication: SCHIZOPHRENIA
     Dosage: 1 MG, 1X/DAY
     Route: 048
  2. FENOFIBRATE. [Suspect]
     Active Substance: FENOFIBRATE
     Indication: BLOOD CHOLESTEROL INCREASED
     Dosage: 1 MILLIGRAM
     Route: 048
  3. RISPERIDONE. [Suspect]
     Active Substance: RISPERIDONE
     Dosage: 2 MILLIGRAM, QD
     Route: 048
  4. SODIUM VALPROATE [Suspect]
     Active Substance: VALPROATE SODIUM
     Dosage: UNK
     Route: 048
  5. SODIUM VALPROATE [Suspect]
     Active Substance: VALPROATE SODIUM
     Dosage: UNK
     Route: 048
  6. ARIPIPRAZOLE. [Concomitant]
     Active Substance: ARIPIPRAZOLE
     Dosage: 15 MILLIGRAM, QD
  7. ZUCLOPENTHIXOL [Concomitant]
     Active Substance: ZUCLOPENTHIXOL
     Dosage: UNK
     Dates: start: 20181012
  8. PANTOPRAZOLE [Suspect]
     Active Substance: PANTOPRAZOLE
     Indication: GASTROOESOPHAGEAL REFLUX DISEASE
     Dosage: UNK
     Route: 048
  9. CLOZARIL [Suspect]
     Active Substance: CLOZAPINE
     Indication: SCHIZOAFFECTIVE DISORDER
     Dosage: 150 MILLIGRAM, QD
     Route: 048
     Dates: start: 20190104
  10. LITHIUM. [Suspect]
     Active Substance: LITHIUM
     Dosage: 250 MILLIGRAM, QD
     Route: 048
     Dates: start: 201908
  11. LITHIUM. [Suspect]
     Active Substance: LITHIUM
     Dosage: 500 MILLIGRAM, QD
     Route: 048
     Dates: start: 201908
  12. SODIUM VALPROATE [Suspect]
     Active Substance: VALPROATE SODIUM
     Dosage: 1400 MILLIGRAM, QD
     Route: 048
  13. METFORMIN [Concomitant]
     Active Substance: METFORMIN HYDROCHLORIDE
     Dosage: 500 MILLIGRAM, QD
  14. PARACETAMOL [Suspect]
     Active Substance: ACETAMINOPHEN
     Indication: PAIN
     Dosage: UNK UNK, QD
     Route: 048
  15. SODIUM VALPROATE [Suspect]
     Active Substance: VALPROATE SODIUM
     Dosage: 1 GRAM, QD
     Route: 048
  16. AMISULPRIDE [Concomitant]
     Active Substance: AMISULPRIDE
     Dosage: 800 MILLIGRAM, QD
  17. RISPERIDONE. [Suspect]
     Active Substance: RISPERIDONE
     Dosage: UNK
     Route: 048
  18. CLOZARIL [Suspect]
     Active Substance: CLOZAPINE
     Dosage: 100 MILLIGRAM, QD
     Route: 048
  19. LITHIUM. [Suspect]
     Active Substance: LITHIUM
     Dosage: 675 MILLIGRAM, QD
     Route: 048
  20. CLOZARIL [Suspect]
     Active Substance: CLOZAPINE
     Dosage: 200 MILLIGRAM, QD
     Route: 048
  21. LITHIUM. [Suspect]
     Active Substance: LITHIUM
     Dosage: 750 MILLIGRAM, QD
     Route: 048
  22. SODIUM VALPROATE [Suspect]
     Active Substance: VALPROATE SODIUM
     Indication: AFFECTIVE DISORDER
     Dosage: 1 GRAM, QD
     Route: 048
  23. CHLORPROMAZINE HYDROCHLORIDE. [Suspect]
     Active Substance: CHLORPROMAZINE HYDROCHLORIDE
     Indication: BEHAVIOUR DISORDER
     Dosage: UNK
     Route: 048
  24. CLOZARIL [Suspect]
     Active Substance: CLOZAPINE
     Indication: SCHIZOPHRENIA
     Dosage: UNK
     Route: 048
     Dates: start: 20190104
  25. CLOZARIL [Suspect]
     Active Substance: CLOZAPINE
     Dosage: 200 MILLIGRAM, QD
     Route: 048
     Dates: end: 20200221
  26. SODIUM VALPROATE [Suspect]
     Active Substance: VALPROATE SODIUM
     Dosage: 1.5 GRAM, QD
     Route: 048
  27. DONEPEZIL. [Concomitant]
     Active Substance: DONEPEZIL
     Dosage: 5 MILLIGRAM, QD

REACTIONS (18)
  - Hallucination [Unknown]
  - Diarrhoea [Unknown]
  - Aggression [Recovered/Resolved]
  - Confusional state [Unknown]
  - Grandiosity [Unknown]
  - Psychotic disorder [Unknown]
  - Acute psychosis [Unknown]
  - Urinary tract infection [Unknown]
  - Neutropenia [Unknown]
  - Delusion [Not Recovered/Not Resolved]
  - Hypotension [Unknown]
  - Ataxia [Unknown]
  - Toxicity to various agents [Unknown]
  - Leukopenia [Unknown]
  - Headache [Unknown]
  - Mental disorder [Not Recovered/Not Resolved]
  - Tremor [Unknown]
  - Malaise [Unknown]
